FAERS Safety Report 10814100 (Version 1)
Quarter: 2015Q1

REPORT INFORMATION
  Report Type: Report from Study
  Country: US (occurrence: US)
  Receive Date: 20150218
  Receipt Date: 20150218
  Transmission Date: 20150721
  Serious: No
  Sender: FDA-Public Use
  Company Number: US-ABBVIE-14K-163-1280798-00

PATIENT
  Age: 66 Year
  Sex: Male
  Weight: 79.45 kg

DRUGS (4)
  1. HUMIRA [Suspect]
     Active Substance: ADALIMUMAB
     Indication: CROHN^S DISEASE
     Dosage: 6 WKS AGO
     Dates: start: 20140717, end: 20140717
  2. HUMIRA [Suspect]
     Active Substance: ADALIMUMAB
     Dates: start: 20140731, end: 20140731
  3. HUMIRA [Suspect]
     Active Substance: ADALIMUMAB
     Dates: start: 20140814
  4. MERCAPTOPURINE. [Concomitant]
     Active Substance: MERCAPTOPURINE
     Indication: PRODUCT USED FOR UNKNOWN INDICATION

REACTIONS (3)
  - Incorrect dose administered [Unknown]
  - Injury associated with device [Recovered/Resolved]
  - Wrong technique in drug usage process [Unknown]

NARRATIVE: CASE EVENT DATE: 20140828
